FAERS Safety Report 20733391 (Version 2)
Quarter: 2022Q2

REPORT INFORMATION
  Report Type: Spontaneous
  Country: US (occurrence: US)
  Receive Date: 20220421
  Receipt Date: 20220516
  Transmission Date: 20220721
  Serious: Yes (Hospitalization)
  Sender: FDA-Public Use
  Company Number: US-BRISTOL-MYERS SQUIBB COMPANY-2022-021731

PATIENT
  Age: 67 Year
  Sex: Female

DRUGS (1)
  1. REVLIMID [Suspect]
     Active Substance: LENALIDOMIDE
     Indication: Plasma cell myeloma
     Dosage: FEQUENCY: DAILY 21 DAYS ON AND 7 DAYS OFF
     Route: 048
     Dates: start: 20220310

REACTIONS (2)
  - Hypersensitivity [Unknown]
  - Osteoporosis [Unknown]
